FAERS Safety Report 24107125 (Version 1)
Quarter: 2024Q3

REPORT INFORMATION
  Report Type: Spontaneous
  Country: US (occurrence: US)
  Receive Date: 20240718
  Receipt Date: 20240718
  Transmission Date: 20241017
  Serious: No
  Sender: APOTEX
  Company Number: US-APOTEX-2024AP007990

PATIENT
  Age: 43 Year
  Sex: Male

DRUGS (4)
  1. BIVALIRUDIN [Suspect]
     Active Substance: BIVALIRUDIN
     Indication: Anticoagulant therapy
     Dosage: 0.1 INTERNATIONAL UNIT/KILOGRAM, Q.H.
     Route: 065
  2. HUMAN RED BLOOD CELL [Concomitant]
     Active Substance: HUMAN RED BLOOD CELL
     Indication: Product used for unknown indication
     Dosage: 0.09 INTERNATIONAL UNIT
     Route: 065
  3. HUMAN RED BLOOD CELL [Concomitant]
     Active Substance: HUMAN RED BLOOD CELL
     Dosage: 0.05 INTERNATIONAL UNIT
     Route: 065
  4. HUMAN RED BLOOD CELL [Concomitant]
     Active Substance: HUMAN RED BLOOD CELL
     Dosage: 0.12 INTERNATIONAL UNIT
     Route: 065

REACTIONS (1)
  - Epistaxis [Recovered/Resolved]
